FAERS Safety Report 10140626 (Version 7)
Quarter: 2015Q2

REPORT INFORMATION
  Report Type: Spontaneous
  Country: US (occurrence: US)
  Receive Date: 20140429
  Receipt Date: 20150409
  Transmission Date: 20150821
  Serious: Yes (Hospitalization, Other)
  Sender: FDA-Public Use
  Company Number: US-BAYER-2014-060973

PATIENT
  Age: 30 Year
  Sex: Female
  Weight: 77.1 kg

DRUGS (1)
  1. MIRENA [Suspect]
     Active Substance: LEVONORGESTREL
     Indication: CONTRACEPTION
     Dosage: 20 MCG/24HR, CONT
     Route: 015
     Dates: start: 20101118, end: 20120308

REACTIONS (8)
  - Ectopic pregnancy with contraceptive device [Recovered/Resolved]
  - Pain [None]
  - Depression [None]
  - Internal haemorrhage [None]
  - Device dislocation [None]
  - Pelvic organ injury [None]
  - Drug ineffective [None]
  - Injury [None]

NARRATIVE: CASE EVENT DATE: 201203
